FAERS Safety Report 8952553 (Version 1)
Quarter: 2012Q4

REPORT INFORMATION
  Report Type: 
  Country: US (occurrence: US)
  Receive Date: 20121205
  Receipt Date: 20121205
  Transmission Date: 20130627
  Serious: No
  Sender: FDA-Public Use
  Company Number: US-PFIZER INC-2012300648

PATIENT
  Age: 54 Year
  Sex: Male
  Weight: 80.73 kg

DRUGS (1)
  1. ALSUMA [Suspect]
     Indication: CLUSTER HEADACHE
     Dosage: UNK
     Dates: start: 20121128

REACTIONS (2)
  - Injection site pain [Unknown]
  - Pain in extremity [Not Recovered/Not Resolved]
